FAERS Safety Report 18485839 (Version 1)
Quarter: 2020Q4

REPORT INFORMATION
  Report Type: Report from Study
  Country: US (occurrence: US)
  Receive Date: 20201110
  Receipt Date: 20201110
  Transmission Date: 20210114
  Serious: No
  Sender: FDA-Public Use
  Company Number: US-ALLERGAN-2040431US

PATIENT
  Sex: Female

DRUGS (1)
  1. NORETHINDRONE 1MG;ETHINYL ESTRAD 10?G;ETHINYL ESTRAD 10?G TAB (TBD) [Suspect]
     Active Substance: ETHINYL ESTRADIOL\NORETHINDRONE
     Indication: CONTRACEPTION
     Dosage: 10 ?G, QD
     Route: 048

REACTIONS (1)
  - Libido decreased [Unknown]
